FAERS Safety Report 22301421 (Version 12)
Quarter: 2024Q3

REPORT INFORMATION
  Report Type: Report from Study
  Country: FR (occurrence: FR)
  Receive Date: 20230509
  Receipt Date: 20240829
  Transmission Date: 20241016
  Serious: Yes (Other)
  Sender: GILEAD
  Company Number: FR-GILEAD-2022-0570896

PATIENT
  Sex: Female
  Weight: 54 kg

DRUGS (37)
  1. SACITUZUMAB GOVITECAN-HZIY [Suspect]
     Active Substance: SACITUZUMAB GOVITECAN-HZIY
     Indication: Triple negative breast cancer
     Dosage: 10 MG/KG, CYCLE 1 D1,8
     Route: 042
     Dates: start: 20220112, end: 20220120
  2. SACITUZUMAB GOVITECAN-HZIY [Suspect]
     Active Substance: SACITUZUMAB GOVITECAN-HZIY
     Dosage: 10 MG/KG, CYCLE 2 D1,8
     Route: 042
     Dates: start: 20220204, end: 20220211
  3. SACITUZUMAB GOVITECAN-HZIY [Suspect]
     Active Substance: SACITUZUMAB GOVITECAN-HZIY
     Dosage: 10 MG/KG, CYCLE 3 D1,8
     Route: 042
     Dates: start: 20220225, end: 20220304
  4. SACITUZUMAB GOVITECAN-HZIY [Suspect]
     Active Substance: SACITUZUMAB GOVITECAN-HZIY
     Dosage: 7.5 MG/KG, CYCLE 4 D1,8
     Route: 042
     Dates: start: 20220318, end: 20220325
  5. SACITUZUMAB GOVITECAN-HZIY [Suspect]
     Active Substance: SACITUZUMAB GOVITECAN-HZIY
     Dosage: 7.5 MG/KG, CYCLE 5 D1,8
     Route: 042
     Dates: start: 20220408, end: 20220419
  6. SACITUZUMAB GOVITECAN-HZIY [Suspect]
     Active Substance: SACITUZUMAB GOVITECAN-HZIY
     Dosage: 7.5 MG/KG, CYCLE 6 D1
     Route: 042
     Dates: start: 20220510
  7. SACITUZUMAB GOVITECAN-HZIY [Suspect]
     Active Substance: SACITUZUMAB GOVITECAN-HZIY
     Dosage: 7.5 MG/KG, CYCLE 7 D1,8
     Route: 042
     Dates: start: 20220531, end: 20220610
  8. SACITUZUMAB GOVITECAN-HZIY [Suspect]
     Active Substance: SACITUZUMAB GOVITECAN-HZIY
     Dosage: 7.5 MG/KG, CYCLE 8 D1,8
     Route: 042
     Dates: start: 20220624, end: 20220701
  9. SACITUZUMAB GOVITECAN-HZIY [Suspect]
     Active Substance: SACITUZUMAB GOVITECAN-HZIY
     Dosage: 7.5 MG/KG, CYCLE 9 D1,8
     Route: 042
     Dates: start: 20220715, end: 20220722
  10. SACITUZUMAB GOVITECAN-HZIY [Suspect]
     Active Substance: SACITUZUMAB GOVITECAN-HZIY
     Dosage: 7.27 MG/KG, CYCLE 10 D1,8
     Route: 042
     Dates: start: 20220804, end: 20220909
  11. SACITUZUMAB GOVITECAN-HZIY [Suspect]
     Active Substance: SACITUZUMAB GOVITECAN-HZIY
     Dosage: 7.27 MG/KG, CYCLE 11 D1,8
     Route: 042
     Dates: start: 20220909, end: 20221021
  12. SACITUZUMAB GOVITECAN-HZIY [Suspect]
     Active Substance: SACITUZUMAB GOVITECAN-HZIY
     Dosage: CYCLE 12 D1 7.27 MG/KG, D8 7.43 MG/KG
     Route: 042
     Dates: start: 20220930, end: 20221007
  13. SACITUZUMAB GOVITECAN-HZIY [Suspect]
     Active Substance: SACITUZUMAB GOVITECAN-HZIY
     Dosage: CYCLE 13 D1 7.44 MG/KG, D8 7.34 MG/KG
     Route: 042
     Dates: start: 20221021, end: 20221026
  14. SACITUZUMAB GOVITECAN-HZIY [Suspect]
     Active Substance: SACITUZUMAB GOVITECAN-HZIY
     Dosage: 7.5 MG/KG, CYCLE 14 D1,8
     Route: 042
     Dates: start: 20221110, end: 20221118
  15. SACITUZUMAB GOVITECAN-HZIY [Suspect]
     Active Substance: SACITUZUMAB GOVITECAN-HZIY
     Dosage: 7.5 MG/KG, CYCLE 15 D1,8
     Route: 042
     Dates: start: 20221202, end: 20221209
  16. SACITUZUMAB GOVITECAN-HZIY [Suspect]
     Active Substance: SACITUZUMAB GOVITECAN-HZIY
     Dosage: 7.5 MG/KG, CYCLE 16 D1,8
     Route: 042
     Dates: start: 20221230, end: 20230106
  17. SACITUZUMAB GOVITECAN-HZIY [Suspect]
     Active Substance: SACITUZUMAB GOVITECAN-HZIY
     Dosage: 7.5 MG/KG, CYCLE 17 D1,8
     Route: 042
     Dates: start: 20230120, end: 20230127
  18. SACITUZUMAB GOVITECAN-HZIY [Suspect]
     Active Substance: SACITUZUMAB GOVITECAN-HZIY
     Dosage: 7.5 MG/KG, CYCLE 18 D1,8
     Route: 042
     Dates: start: 20230210, end: 20230217
  19. SACITUZUMAB GOVITECAN-HZIY [Suspect]
     Active Substance: SACITUZUMAB GOVITECAN-HZIY
     Dosage: 7.5 MG/KG, CYCLE 19 D1,8
     Route: 042
     Dates: start: 20230303, end: 20230309
  20. SACITUZUMAB GOVITECAN-HZIY [Suspect]
     Active Substance: SACITUZUMAB GOVITECAN-HZIY
     Dosage: 7.5 MG/KG, CYCLE 20 D1,8
     Route: 042
     Dates: start: 20230324, end: 20230331
  21. SACITUZUMAB GOVITECAN-HZIY [Suspect]
     Active Substance: SACITUZUMAB GOVITECAN-HZIY
     Dosage: 7.5 MG/KG, CYCLE 21 D1D8
     Route: 042
     Dates: start: 20230414, end: 20230420
  22. SACITUZUMAB GOVITECAN-HZIY [Suspect]
     Active Substance: SACITUZUMAB GOVITECAN-HZIY
     Dosage: 7.5 MG/KG, CYCLE 22 D1D8
     Route: 042
     Dates: start: 20230505, end: 20230512
  23. SACITUZUMAB GOVITECAN-HZIY [Suspect]
     Active Substance: SACITUZUMAB GOVITECAN-HZIY
     Dosage: 7.5 MG/KG, CYCLE 23 D1D8
     Route: 042
     Dates: start: 20230526, end: 20230602
  24. SACITUZUMAB GOVITECAN-HZIY [Suspect]
     Active Substance: SACITUZUMAB GOVITECAN-HZIY
     Dosage: 7.5 MG/KG, CYCLE 24 D1D8
     Route: 042
     Dates: start: 20230616, end: 20230623
  25. SACITUZUMAB GOVITECAN-HZIY [Suspect]
     Active Substance: SACITUZUMAB GOVITECAN-HZIY
     Dosage: 7.5 MG/KG, CYCLE 25 D1D8
     Route: 042
     Dates: start: 20230707, end: 20230714
  26. SACITUZUMAB GOVITECAN-HZIY [Suspect]
     Active Substance: SACITUZUMAB GOVITECAN-HZIY
     Dosage: 7.5 MG/KG, CYCLE 26 D1D8
     Route: 042
     Dates: start: 20230804, end: 20230811
  27. SACITUZUMAB GOVITECAN-HZIY [Suspect]
     Active Substance: SACITUZUMAB GOVITECAN-HZIY
     Dosage: 7.5 MG/KG, CYCLE 27 D1D8
     Route: 042
     Dates: start: 20230925, end: 20231003
  28. SACITUZUMAB GOVITECAN-HZIY [Suspect]
     Active Substance: SACITUZUMAB GOVITECAN-HZIY
     Dosage: 7.5 MG/KG, CYCLE 28 D1D8
     Route: 042
     Dates: start: 20231016, end: 20231023
  29. SACITUZUMAB GOVITECAN-HZIY [Suspect]
     Active Substance: SACITUZUMAB GOVITECAN-HZIY
     Dosage: 7.5 MG/KG, CYCLE 29 D1D8
     Route: 042
     Dates: start: 20231106, end: 20231113
  30. SACITUZUMAB GOVITECAN-HZIY [Suspect]
     Active Substance: SACITUZUMAB GOVITECAN-HZIY
     Dosage: 7.5 MG/KG, CYCLE 30 D1D8
     Route: 042
     Dates: start: 20231127, end: 20231204
  31. SACITUZUMAB GOVITECAN-HZIY [Suspect]
     Active Substance: SACITUZUMAB GOVITECAN-HZIY
     Dosage: 7.5 MG/KG, CYCLE 31 D1D8
     Route: 042
     Dates: start: 20240102, end: 20240108
  32. SACITUZUMAB GOVITECAN-HZIY [Suspect]
     Active Substance: SACITUZUMAB GOVITECAN-HZIY
     Dosage: 55 MG/KG, CYCLE 32 D1D8
     Route: 042
     Dates: start: 20240122, end: 20240130
  33. SACITUZUMAB GOVITECAN-HZIY [Suspect]
     Active Substance: SACITUZUMAB GOVITECAN-HZIY
     Dosage: 7.5 MG/KG, CYCLE 33 D1D8
     Route: 042
     Dates: start: 20240219, end: 20240226
  34. SACITUZUMAB GOVITECAN-HZIY [Suspect]
     Active Substance: SACITUZUMAB GOVITECAN-HZIY
     Dosage: 7.5 MG/KG, CYCLE 34 D1D8
     Route: 042
     Dates: start: 20240326, end: 20240402
  35. SACITUZUMAB GOVITECAN-HZIY [Suspect]
     Active Substance: SACITUZUMAB GOVITECAN-HZIY
     Dosage: 7.5 MG/KG, CYCLE 35 D1D8
     Route: 042
     Dates: start: 20240415, end: 20240422
  36. SACITUZUMAB GOVITECAN-HZIY [Suspect]
     Active Substance: SACITUZUMAB GOVITECAN-HZIY
     Dosage: 7.5 MG/KG, CYCLE 36 D1D8
     Route: 042
     Dates: start: 20240506, end: 20240513
  37. SACITUZUMAB GOVITECAN-HZIY [Suspect]
     Active Substance: SACITUZUMAB GOVITECAN-HZIY
     Dosage: 7.5 MG/KG
     Route: 042
     Dates: end: 20240517

REACTIONS (22)
  - Cholestasis [Unknown]
  - Diarrhoea [Unknown]
  - Alopecia [Not Recovered/Not Resolved]
  - Cell death [Unknown]
  - Balance disorder [Unknown]
  - Off label use [Unknown]
  - Inappropriate schedule of product administration [Unknown]
  - Inappropriate schedule of product administration [Unknown]
  - Constipation [Unknown]
  - Haematotoxicity [Unknown]
  - Nausea [Unknown]
  - Inappropriate schedule of product administration [Unknown]
  - COVID-19 [Unknown]
  - Herpes zoster [Unknown]
  - Ill-defined disorder [Unknown]
  - Inappropriate schedule of product administration [Recovered/Resolved]
  - Inappropriate schedule of product administration [Unknown]
  - Inappropriate schedule of product administration [Unknown]
  - Inappropriate schedule of product administration [Unknown]
  - Inappropriate schedule of product administration [Recovered/Resolved]
  - Inappropriate schedule of product administration [Recovered/Resolved]
  - Inappropriate schedule of product administration [Unknown]

NARRATIVE: CASE EVENT DATE: 20240219
